FAERS Safety Report 25303728 (Version 1)
Quarter: 2025Q2

REPORT INFORMATION
  Report Type: Spontaneous
  Country: US (occurrence: US)
  Receive Date: 20250513
  Receipt Date: 20250513
  Transmission Date: 20250717
  Serious: Yes (Death, Other)
  Sender: AMGEN
  Company Number: US-AMGEN-USASP2025091418

PATIENT
  Age: 54 Year
  Sex: Male

DRUGS (7)
  1. DARBEPOETIN ALFA [Suspect]
     Active Substance: DARBEPOETIN ALFA
     Indication: Anaemia
     Route: 058
  2. TRANEXAMIC ACID [Concomitant]
     Active Substance: TRANEXAMIC ACID
  3. NOREPINEPHRINE [Concomitant]
     Active Substance: NOREPINEPHRINE
  4. EPINEPHRINE [Concomitant]
     Active Substance: EPINEPHRINE
  5. VASOPRESSIN [Concomitant]
     Active Substance: VASOPRESSIN
  6. DOPAMINE [Concomitant]
     Active Substance: DOPAMINE HYDROCHLORIDE
  7. ALBUMIN HUMAN [Concomitant]
     Active Substance: ALBUMIN HUMAN

REACTIONS (2)
  - Renal procedural complication [Fatal]
  - Haemoglobin decreased [Unknown]
